FAERS Safety Report 7118956-5 (Version None)
Quarter: 2010Q4

REPORT INFORMATION
  Report Type: 
  Country: None (occurrence: None)
  Receive Date: 20101123
  Receipt Date: 20101115
  Transmission Date: 20110411
  Serious: Yes (Other)
  Sender: FDA-Public Use
  Company Number: US-AMGEN-USASP2010004942

PATIENT

DRUGS (8)
  1. NPLATE [Suspect]
     Indication: IDIOPATHIC THROMBOCYTOPENIC PURPURA
     Dates: start: 20100710
  2. PREDNISONE [Concomitant]
  3. DOXYCYCLINE [Concomitant]
  4. INSULIN [Concomitant]
  5. FOLIC ACID [Concomitant]
  6. PRILOSEC [Concomitant]
  7. DIFLUCAN [Concomitant]
  8. CALCIUM [Concomitant]

REACTIONS (2)
  - RASH [None]
  - SKIN HYPOPIGMENTATION [None]
